FAERS Safety Report 9202332 (Version 1)
Quarter: 2013Q1

REPORT INFORMATION
  Report Type: Spontaneous
  Country: US (occurrence: None)
  Receive Date: 20130329
  Receipt Date: 20130329
  Transmission Date: 20140127
  Serious: Yes (Other)
  Sender: FDA-Public Use
  Company Number: None

PATIENT
  Age: 84 Year
  Sex: Female
  Weight: 72.58 kg

DRUGS (2)
  1. LEXAPRO [Suspect]
     Indication: DEPRESSION
     Dates: start: 2000
  2. SEROQUEL [Suspect]
     Indication: DEPRESSION
     Dates: start: 2000

REACTIONS (1)
  - Breast cancer [None]
